FAERS Safety Report 10593013 (Version 1)
Quarter: 2014Q4

REPORT INFORMATION
  Report Type: Spontaneous
  Country: US (occurrence: None)
  Receive Date: 20141118
  Receipt Date: 20141118
  Transmission Date: 20150529
  Serious: Yes (Hospitalization)
  Sender: FDA-Public Use
  Company Number: None

PATIENT
  Age: 71 Year
  Sex: Male
  Weight: 73.6 kg

DRUGS (1)
  1. CIPROFLOXACIN. [Suspect]
     Active Substance: CIPROFLOXACIN
     Indication: ACUTE KIDNEY INJURY
     Route: 048
     Dates: start: 20140226, end: 20140322

REACTIONS (9)
  - Vomiting [None]
  - Haematemesis [None]
  - Renal tubular necrosis [None]
  - Abdominal pain [None]
  - Hyperkalaemia [None]
  - Hypophagia [None]
  - Gastric haemorrhage [None]
  - Nausea [None]
  - Acute kidney injury [None]

NARRATIVE: CASE EVENT DATE: 20140529
